FAERS Safety Report 6030966-8 (Version None)
Quarter: 2009Q1

REPORT INFORMATION
  Report Type: 
  Country: None (occurrence: None)
  Receive Date: 20090106
  Receipt Date: 20081226
  Transmission Date: 20090719
  Serious: Yes (Life-Threatening)
  Sender: FDA-Public Use
  Company Number: CHNY2008RU04584

PATIENT
  Sex: Male

DRUGS (1)
  1. CLEMASTINE FUMARATE [Suspect]
     Indication: HYPERSENSITIVITY
     Dosage: 1 TABLET, TWICE DAILY (UP TO 6 TABS DAILY), ORAL
     Route: 048
     Dates: start: 20081222

REACTIONS (1)
  - ANAPHYLACTIC SHOCK [None]
